FAERS Safety Report 5088958-1 (Version None)
Quarter: 2006Q3

REPORT INFORMATION
  Report Type: 
  Country: None (occurrence: None)
  Receive Date: 20060825
  Receipt Date: 20060821
  Transmission Date: 20061208
  Serious: Yes (Hospitalization)
  Sender: FDA-Public Use
  Company Number: FR-SANOFI-SYNTHELABO-A02200602114

PATIENT
  Age: 83 Year
  Sex: Female

DRUGS (8)
  1. HEMIGOXINE [Suspect]
     Indication: DRUG USE FOR UNKNOWN INDICATION
     Dosage: UNK
     Route: 048
  2. FUCIDINE CAP [Suspect]
     Indication: WOUND INFECTION
     Route: 051
     Dates: start: 20060801, end: 20060808
  3. MOPRAL [Suspect]
     Indication: DRUG USE FOR UNKNOWN INDICATION
     Route: 048
     Dates: end: 20060801
  4. SEROPRAM [Suspect]
     Indication: DYSTHYMIC DISORDER
     Dosage: UNK
     Route: 048
     Dates: end: 20060801
  5. LANTUS [Suspect]
     Indication: DIABETES MELLITUS
     Dosage: UNK
     Route: 058
     Dates: end: 20060807
  6. OFLOCET [Suspect]
     Indication: WOUND INFECTION
     Dosage: UNK
     Route: 048
     Dates: start: 20060801, end: 20060808
  7. STILNOX [Suspect]
     Indication: DRUG USE FOR UNKNOWN INDICATION
     Route: 048
  8. PLAVIX [Suspect]
     Indication: MYOCARDIAL ISCHAEMIA
     Dosage: UNK
     Route: 048

REACTIONS (6)
  - BLOOD BILIRUBIN INCREASED [None]
  - C-REACTIVE PROTEIN INCREASED [None]
  - GAMMA-GLUTAMYLTRANSFERASE INCREASED [None]
  - GENERAL PHYSICAL HEALTH DETERIORATION [None]
  - JAUNDICE [None]
  - WHITE BLOOD CELL COUNT INCREASED [None]
